FAERS Safety Report 13357895 (Version 1)
Quarter: 2017Q1

REPORT INFORMATION
  Report Type: Spontaneous
  Country: US (occurrence: US)
  Receive Date: 20170322
  Receipt Date: 20170322
  Transmission Date: 20170429
  Serious: Yes (Hospitalization, Other)
  Sender: FDA-Public Use
  Company Number: US-ZYDUS-014369

PATIENT
  Age: 36 Year
  Sex: Male

DRUGS (1)
  1. HALOPERIDOL. [Suspect]
     Active Substance: HALOPERIDOL
     Indication: PRODUCT USED FOR UNKNOWN INDICATION
     Dosage: TOTAL OF THREE DOSES
     Route: 030

REACTIONS (7)
  - Seizure [Recovered/Resolved]
  - Autonomic nervous system imbalance [Recovered/Resolved]
  - Neuroleptic malignant syndrome [Recovered/Resolved]
  - Affective disorder [Recovered/Resolved]
  - Blood creatine phosphokinase increased [Recovered/Resolved]
  - Muscle rigidity [Recovered/Resolved]
  - Hypometabolism [Recovered/Resolved]
